FAERS Safety Report 20461544 (Version 1)
Quarter: 2022Q1

REPORT INFORMATION
  Report Type: Spontaneous
  Country: NO (occurrence: NO)
  Receive Date: 20220211
  Receipt Date: 20220211
  Transmission Date: 20220424
  Serious: Yes (Other)
  Sender: FDA-Public Use
  Company Number: None

PATIENT
  Age: 61 Year
  Sex: Female
  Weight: 75 kg

DRUGS (2)
  1. AJOVY [Suspect]
     Active Substance: FREMANEZUMAB-VFRM
     Indication: Migraine prophylaxis
     Dosage: N02CD03 - FREMANEZUMAB -SUBTANCE NAME : FREMANEZUMAB ,
     Route: 058
     Dates: start: 20210220
  2. METOPROLOL [Concomitant]
     Active Substance: METOPROLOL
     Indication: Migraine prophylaxis
     Dosage: 25 MG, METOPROLOL SANDOZ DEPOTTAB 25 MG, C07AB02 - METOPROLOL - ONGOING TREATMENTSUBTANCE NAME : MET

REACTIONS (9)
  - Prinzmetal angina [Recovered/Resolved]
  - Connective tissue inflammation [Recovering/Resolving]
  - Inflammation [Recovering/Resolving]
  - Fall [Unknown]
  - Rotator cuff syndrome [Recovering/Resolving]
  - Pain in extremity [Recovered/Resolved]
  - Gingivitis [Recovering/Resolving]
  - Rib fracture [Unknown]
  - Cystitis noninfective [Recovering/Resolving]

NARRATIVE: CASE EVENT DATE: 20210301
